FAERS Safety Report 4864379-9 (Version None)
Quarter: 2005Q4

REPORT INFORMATION
  Report Type: 
  Country: None (occurrence: None)
  Receive Date: 20051222
  Receipt Date: 20050629
  Transmission Date: 20060501
  Serious: Yes (Hospitalization, Other)
  Sender: FDA-Public Use
  Company Number: US-BRISTOL-MYERS SQUIBB COMPANY-13020722

PATIENT
  Age: 72 Year
  Sex: Male
  Weight: 111 kg

DRUGS (23)
  1. CETUXIMAB [Suspect]
     Indication: NON-SMALL CELL LUNG CANCER STAGE IIIB
     Dosage: PER PROTOCOL:DUE TO }2WK DELAY IN TX CAUSED BY HOSP,PT D/C'D FROM STUDY ON 12/JUL/05. INITIAL 15-MAR
     Route: 042
     Dates: start: 20050621, end: 20050621
  2. CARBOPLATIN [Suspect]
     Indication: NON-SMALL CELL LUNG CANCER STAGE IIIB
     Dosage: AUC=2. ADM OVER 30 MINS/2-WEEK DELAY/TOTAL DOSE ADM ON STUDY=3721.71 MG. INITIAL TX DATE:22-MAR-05
     Dates: start: 20050621, end: 20050621
  3. TAXOL [Suspect]
     Indication: NON-SMALL CELL LUNG CANCER STAGE IIIB
     Dosage: ADM OVER 60 MINS/2-WEEK DELAY/TOTAL DOSE ADM ON STUDY=3537.2 MG. INITIAL TX DATE:22-MAR-05.
     Dates: start: 20050621, end: 20050621
  4. RADIATION THERAPY [Suspect]
     Indication: NON-SMALL CELL LUNG CANCER STAGE IIIB
     Dosage: 63 GY/7 WEEKS/35 DAILY FRACTIONS FOR WEEKS 2-8. INITIAL TX DATE: 22-MAR-05.
     Dates: start: 20050510, end: 20050510
  5. LORTAB [Suspect]
  6. ALLEGRA [Concomitant]
  7. AMARYL [Concomitant]
  8. AMBIEN [Concomitant]
  9. ARANESP [Concomitant]
  10. AVANDAMET [Concomitant]
  11. COMBIVENT [Concomitant]
  12. DETROL [Concomitant]
  13. LANTUS [Concomitant]
  14. LASIX [Concomitant]
  15. LOPID [Concomitant]
  16. MAGIC MOUTHWASH [Concomitant]
  17. MEGACE [Concomitant]
  18. MIRALAX [Concomitant]
  19. NEXIUM [Concomitant]
  20. PROCARDIA [Concomitant]
  21. ZESTRIL [Concomitant]
  22. ZITHROMAX [Concomitant]
  23. ZOCOR [Concomitant]

REACTIONS (30)
  - ACUTE PRERENAL FAILURE [None]
  - ANAEMIA [None]
  - ANXIETY [None]
  - ASTHENIA [None]
  - ATRIAL FLUTTER [None]
  - BALANCE DISORDER [None]
  - CONSTIPATION [None]
  - DECUBITUS ULCER [None]
  - DEHYDRATION [None]
  - DEPRESSION [None]
  - DIZZINESS [None]
  - DYSPHAGIA [None]
  - DYSPHASIA [None]
  - DYSPNOEA [None]
  - ENTEROCOCCAL INFECTION [None]
  - EPISTAXIS [None]
  - ERYTHEMA MULTIFORME [None]
  - FLUID OVERLOAD [None]
  - HYPERGLYCAEMIA [None]
  - HYPOKALAEMIA [None]
  - HYPOTENSION [None]
  - MUSCULAR WEAKNESS [None]
  - NEUTROPENIA [None]
  - PANCYTOPENIA [None]
  - PNEUMONIA BACTERIAL [None]
  - PNEUMONIA STAPHYLOCOCCAL [None]
  - PNEUMONITIS [None]
  - RESPIRATORY FAILURE [None]
  - SEPTIC SHOCK [None]
  - TRACHEOBRONCHITIS [None]
